FAERS Safety Report 9381324 (Version 1)
Quarter: 2013Q3

REPORT INFORMATION
  Report Type: Spontaneous
  Country: US (occurrence: US)
  Receive Date: 20130703
  Receipt Date: 20130703
  Transmission Date: 20140515
  Serious: Yes (Other)
  Sender: FDA-Public Use
  Company Number: US-ALEXION-A201301509

PATIENT
  Age: 16 Year
  Sex: Male

DRUGS (1)
  1. SOLIRIS 300MG [Suspect]
     Indication: HAEMOLYTIC URAEMIC SYNDROME
     Dosage: UNK
     Route: 042

REACTIONS (9)
  - Renal transplant [Unknown]
  - Intestinal perforation [Unknown]
  - Abdominal adhesions [Unknown]
  - Blood urea increased [Recovering/Resolving]
  - Blood creatinine increased [Recovering/Resolving]
  - Ileostomy [Unknown]
  - Impaired healing [Unknown]
  - Abdominal pain [Unknown]
  - Renal impairment [Recovering/Resolving]
